FAERS Safety Report 17308870 (Version 1)
Quarter: 2020Q1

REPORT INFORMATION
  Report Type: Spontaneous
  Country: US (occurrence: US)
  Receive Date: 20200123
  Receipt Date: 20200123
  Transmission Date: 20200409
  Serious: Yes (Hospitalization)
  Sender: FDA-Public Use
  Company Number: US-TEVA-2020-US-1171352

PATIENT
  Sex: Male

DRUGS (9)
  1. LANTUS [Concomitant]
     Active Substance: INSULIN GLARGINE
     Route: 065
  2. PERFOROMIST INH [Concomitant]
     Route: 065
  3. AMOXICILLIN. [Concomitant]
     Active Substance: AMOXICILLIN
     Route: 065
  4. GRANIX [Interacting]
     Active Substance: TBO-FILGRASTIM
     Indication: PANCREATIC CARCINOMA
  5. DIPHENHYDRAMINE. [Concomitant]
     Active Substance: DIPHENHYDRAMINE
     Route: 065
  6. GRANIX [Suspect]
     Active Substance: TBO-FILGRASTIM
     Indication: NEUTROPENIA
     Dosage: 300MCG SUBCUTANEOUS ONCE
     Route: 058
     Dates: start: 20191020
  7. ALBUTEROL SULFATE HFA TEVA [Interacting]
     Active Substance: ALBUTEROL SULFATE
     Route: 055
  8. LACTULOSE. [Concomitant]
     Active Substance: LACTULOSE
     Route: 065
  9. ENGERIX-B [Concomitant]
     Active Substance: HEPATITIS B VIRUS SUBTYPE ADW2 HBSAG SURFACE PROTEIN ANTIGEN
     Route: 065

REACTIONS (2)
  - Hospitalisation [Unknown]
  - Drug interaction [Unknown]
